FAERS Safety Report 18282430 (Version 1)
Quarter: 2020Q3

REPORT INFORMATION
  Report Type: Spontaneous
  Country: ES (occurrence: ES)
  Receive Date: 20200918
  Receipt Date: 20200918
  Transmission Date: 20201103
  Serious: Yes (Other)
  Sender: FDA-Public Use
  Company Number: ES-VIIV HEALTHCARE LIMITED-ES2020185929

PATIENT
  Age: 35 Year
  Sex: Female

DRUGS (10)
  1. LAMIVUDINE. [Suspect]
     Active Substance: LAMIVUDINE
     Indication: HIV TEST POSITIVE
     Dosage: 1 DF, QD
     Route: 048
     Dates: start: 20200827
  2. DOLUTEGRAVIR [Concomitant]
     Active Substance: DOLUTEGRAVIR
     Indication: HIV TEST POSITIVE
     Dosage: 50 MG, QD
     Route: 048
     Dates: start: 20180126
  3. CIPROTERONA AND ETINILESTRADIOL [Concomitant]
     Indication: CONTRACEPTION
     Dosage: 1 DF, QD
     Route: 048
     Dates: start: 20181002
  4. VALIUM [Concomitant]
     Active Substance: DIAZEPAM
     Indication: HISTRIONIC PERSONALITY DISORDER
     Dosage: 10 MG, BID
     Route: 048
     Dates: start: 20200731, end: 20200824
  5. STILNOX [Concomitant]
     Active Substance: ZOLPIDEM TARTRATE
     Indication: HISTRIONIC PERSONALITY DISORDER
     Dosage: 10 MG, BID
     Route: 048
     Dates: start: 20200731, end: 20200829
  6. TERBINAFINE. [Concomitant]
     Active Substance: TERBINAFINE
     Indication: INGROWING NAIL
     Dosage: 250 MG, QD
     Route: 048
     Dates: start: 20191012
  7. SEPTRIN FORTE [Concomitant]
     Active Substance: SULFAMETHOXAZOLE\TRIMETHOPRIM
     Indication: HIV TEST POSITIVE
     Dosage: 3 DF
     Route: 048
     Dates: start: 20160509
  8. TIOCONAZOL [Concomitant]
     Indication: DERMATOPHYTOSIS OF NAIL
     Dosage: 1 DF, BID
     Route: 061
     Dates: start: 20181210
  9. IRON SULPHATE [Concomitant]
     Active Substance: FERROUS SULFATE ANHYDROUS
     Indication: IRON DEFICIENCY ANAEMIA
     Dosage: 105 MG, QD
     Route: 048
     Dates: start: 20180221
  10. COBICISTAT + DARUNAVIR [Concomitant]
     Active Substance: COBICISTAT\DARUNAVIR ETHANOLATE
     Indication: HIV TEST POSITIVE
     Dosage: 1 DF, QD
     Route: 048

REACTIONS (1)
  - Nephropathy [Not Recovered/Not Resolved]

NARRATIVE: CASE EVENT DATE: 20200827
